FAERS Safety Report 5121994-5 (Version None)
Quarter: 2006Q4

REPORT INFORMATION
  Report Type: 
  Country: None (occurrence: None)
  Receive Date: 20061006
  Receipt Date: 20060522
  Transmission Date: 20070319
  Serious: Yes (Other)
  Sender: FDA-Public Use
  Company Number: PHEH2006US06669

PATIENT
  Age: 83 Year
  Sex: Male

DRUGS (2)
  1. ZOMETA [Suspect]
     Indication: METASTASES TO BONE
     Dosage: 4 MG, 1 X MONTH
     Dates: start: 20050608, end: 20060426
  2. FOSAMAX [Concomitant]
     Dosage: 70 MG
     Route: 048
     Dates: start: 20050529, end: 20060521

REACTIONS (10)
  - CELLULITIS [None]
  - ENDODONTIC PROCEDURE [None]
  - LOCAL SWELLING [None]
  - NECROSIS [None]
  - ORAL SOFT TISSUE DISORDER [None]
  - PAIN IN JAW [None]
  - RASH PUSTULAR [None]
  - SOFT TISSUE INFECTION [None]
  - SWELLING [None]
  - TOOTH ABSCESS [None]
